FAERS Safety Report 4957101-9 (Version None)
Quarter: 2006Q1

REPORT INFORMATION
  Report Type: 
  Country: None (occurrence: None)
  Receive Date: 20060323
  Receipt Date: 20060316
  Transmission Date: 20060701
  Serious: Yes (Other)
  Sender: FDA-Public Use
  Company Number: 2006037569

PATIENT
  Age: 78 Year
  Sex: Female

DRUGS (5)
  1. LIPITOR [Suspect]
     Indication: BLOOD CHOLESTEROL INCREASED
     Dosage: 20 MG (20 MG, 1 IN 1 D) ORAL
     Route: 048
     Dates: start: 20040101, end: 20050901
  2. TOPROL-XL [Suspect]
     Indication: HYPERTENSION
     Dosage: 25 MG (25 MG, 1 IN 1 D) ORAL
     Route: 048
     Dates: start: 20050101
  3. VYTORIN [Suspect]
     Indication: BLOOD CHOLESTEROL INCREASED
     Dosage: 10/20 MG (1 IN 1 D) ORAL
     Route: 048
     Dates: start: 20050901
  4. CARDIZEM [Concomitant]
  5. BENICAR HCT [Concomitant]

REACTIONS (3)
  - ALOPECIA [None]
  - BLOOD PRESSURE INCREASED [None]
  - JOINT SPRAIN [None]
